FAERS Safety Report 6755971-5 (Version None)
Quarter: 2010Q2

REPORT INFORMATION
  Report Type: 
  Country: None (occurrence: None)
  Receive Date: 20100604
  Receipt Date: 20100526
  Transmission Date: 20101027
  Serious: Yes (Other)
  Sender: FDA-Public Use
  Company Number: PHHY2010BR34662

PATIENT
  Sex: Female
  Weight: 74 kg

DRUGS (4)
  1. EXELON [Suspect]
     Indication: DEMENTIA ALZHEIMER'S TYPE
     Dosage: 1.5 MG (ONE CAPSULE), BID
     Route: 048
     Dates: start: 20060101
  2. EXELON [Suspect]
     Dosage: 3 MG (ONE CAPSULE), BID
     Route: 048
  3. EXELON [Suspect]
     Dosage: 4.5 MG (ONE CAPSULE), BID
     Route: 048
     Dates: start: 20080101
  4. EXELON [Suspect]
     Dosage: 3 MG (ONE CAPSULE), BID
     Route: 048

REACTIONS (5)
  - BONE FISSURE [None]
  - BRADYCARDIA [None]
  - FALL [None]
  - FATIGUE [None]
  - HAEMATOMA [None]
